FAERS Safety Report 7877702-8 (Version None)
Quarter: 2011Q4

REPORT INFORMATION
  Report Type: 
  Country: None (occurrence: None)
  Receive Date: 20111031
  Receipt Date: 20111031
  Transmission Date: 20120403
  Serious: Yes (Life-Threatening, Hospitalization)
  Sender: FDA-Public Use
  Company Number: None

PATIENT
  Age: 53 Year
  Sex: Male
  Weight: 137 kg

DRUGS (10)
  1. FUROSEMIDE [Concomitant]
  2. PRADAXA [Suspect]
     Indication: ATRIAL FIBRILLATION
     Dates: start: 20110701, end: 20111021
  3. CNDESARTAN, [Concomitant]
  4. SPIRONOLACTONE [Concomitant]
     Route: 048
  5. LOVAZA [Concomitant]
  6. DIGOXIN [Concomitant]
  7. ASPIRIN [Concomitant]
     Route: 048
  8. VITAMIN B COMPLEX CAP [Concomitant]
  9. VITAMIN D [Concomitant]
  10. CARVEDILOL [Concomitant]
     Route: 048

REACTIONS (3)
  - BRAIN MIDLINE SHIFT [None]
  - SUBDURAL HAEMORRHAGE [None]
  - ISCHAEMIC STROKE [None]
